FAERS Safety Report 10506689 (Version 1)
Quarter: 2014Q4

REPORT INFORMATION
  Report Type: Other
  Country: LB (occurrence: LB)
  Receive Date: 20141009
  Receipt Date: 20141009
  Transmission Date: 20150528
  Serious: Yes (Hospitalization)
  Sender: FDA-Public Use
  Company Number: LB-LUPIN PHARMACEUTICALS INC.-2014-01580

PATIENT
  Age: 70 Year
  Sex: Male

DRUGS (4)
  1. AMPICILLIN + SULBACTUM [Concomitant]
     Indication: NOSOCOMIAL INFECTION
     Route: 065
  2. CIPROFLOXACIN. [Suspect]
     Active Substance: CIPROFLOXACIN
     Indication: NOSOCOMIAL INFECTION
     Route: 065
  3. PREDNISOLONE. [Concomitant]
     Active Substance: PREDNISOLONE
     Indication: NEPHROPATHY
     Dosage: 40 MILLIGRAM
     Route: 065
  4. RITUXIMAB [Concomitant]
     Active Substance: RITUXIMAB
     Indication: NEPHROPATHY
     Route: 065

REACTIONS (2)
  - Blood creatinine increased [Unknown]
  - Tendon rupture [Recovered/Resolved]
